FAERS Safety Report 6234783-5 (Version None)
Quarter: 2009Q2

REPORT INFORMATION
  Report Type: 
  Country: None (occurrence: None)
  Receive Date: 20090618
  Receipt Date: 20090611
  Transmission Date: 20091009
  Serious: Yes (Other)
  Sender: FDA-Public Use
  Company Number: PHEH2009US06067

PATIENT
  Sex: Female

DRUGS (1)
  1. RECLAST [Suspect]
     Dosage: UNK
     Dates: start: 20090101

REACTIONS (4)
  - DRUG INEFFECTIVE [None]
  - HERPES ZOSTER [None]
  - MOUTH ULCERATION [None]
  - ORAL MUCOSAL ERUPTION [None]
